FAERS Safety Report 11471725 (Version 3)
Quarter: 2015Q3

REPORT INFORMATION
  Report Type: Report from Study
  Country: DE (occurrence: DE)
  Receive Date: 20150908
  Receipt Date: 20150923
  Transmission Date: 20151125
  Serious: Yes (Death, Hospitalization)
  Sender: FDA-Public Use
  Company Number: PHHY2015DE106079

PATIENT
  Sex: Male
  Weight: 77 kg

DRUGS (2)
  1. TASIGNA [Suspect]
     Active Substance: NILOTINIB
     Indication: CHRONIC MYELOID LEUKAEMIA
     Dosage: 800 MG, BID
     Route: 048
     Dates: start: 20140506
  2. TASIGNA [Suspect]
     Active Substance: NILOTINIB
     Dosage: 400 MG,
     Route: 048
     Dates: end: 20150617

REACTIONS (2)
  - Death [Fatal]
  - Thalamic infarction [Recovered/Resolved]

NARRATIVE: CASE EVENT DATE: 20150617
